FAERS Safety Report 5985185-8 (Version None)
Quarter: 2008Q4

REPORT INFORMATION
  Report Type: 
  Country: None (occurrence: None)
  Receive Date: 20081203
  Receipt Date: 20081119
  Transmission Date: 20090506
  Serious: Yes (Other)
  Sender: FDA-Public Use
  Company Number: 239206K07USA

PATIENT
  Age: 27 Year
  Sex: Female
  Weight: 61 kg

DRUGS (1)
  1. REBIF [Suspect]
     Indication: MULTIPLE SCLEROSIS
     Dosage: 44 MCG, 3 IN 1 WEEKS, SUBCUTANEOUS
     Route: 058
     Dates: start: 20050708, end: 20060201

REACTIONS (4)
  - ABORTION SPONTANEOUS [None]
  - DRUG EXPOSURE BEFORE PREGNANCY [None]
  - PREGNANCY [None]
  - STRESS [None]
